FAERS Safety Report 4607069-X (Version None)
Quarter: 2005Q1

REPORT INFORMATION
  Report Type: 
  Country: None (occurrence: None)
  Receive Date: 20050314
  Receipt Date: 20050302
  Transmission Date: 20050727
  Serious: Yes (Hospitalization)
  Sender: FDA-Public Use
  Company Number: FR-BRISTOL-MYERS SQUIBB COMPANY-12889960

PATIENT
  Age: 77 Year
  Sex: Female
  Weight: 64 kg

DRUGS (12)
  1. ENDOXAN [Suspect]
     Indication: DIFFUSE LARGE B-CELL LYMPHOMA STAGE III
     Route: 042
     Dates: start: 20041211, end: 20041211
  2. METHOTREXATE [Suspect]
     Indication: DIFFUSE LARGE B-CELL LYMPHOMA STAGE III
     Route: 037
     Dates: start: 20041211, end: 20041211
  3. MABTHERA [Suspect]
     Indication: DIFFUSE LARGE B-CELL LYMPHOMA STAGE III
     Route: 042
     Dates: start: 20041211, end: 20041211
  4. ONCOVIN [Suspect]
     Indication: DIFFUSE LARGE B-CELL LYMPHOMA STAGE III
     Route: 042
     Dates: start: 20041211, end: 20041211
  5. ADRIBLASTINE [Suspect]
     Indication: DIFFUSE LARGE B-CELL LYMPHOMA STAGE III
     Route: 042
     Dates: start: 20041211, end: 20041211
  6. CORTANCYL [Concomitant]
     Dates: start: 20041211, end: 20041215
  7. POLARAMINE [Concomitant]
     Dates: start: 20041211, end: 20041211
  8. SOLU-MEDROL [Concomitant]
     Dates: start: 20041211, end: 20041211
  9. DAFALGAN [Concomitant]
     Dates: start: 20041211, end: 20041211
  10. OMEPRAZOLE [Concomitant]
     Dates: start: 20041201, end: 20041201
  11. TRIATEC [Concomitant]
     Dates: start: 20041201, end: 20041201
  12. ELISOR [Concomitant]
     Dates: start: 20041201, end: 20041201

REACTIONS (4)
  - DERMATITIS BULLOUS [None]
  - PANCYTOPENIA [None]
  - PLEURISY [None]
  - PYREXIA [None]
